FAERS Safety Report 12806163 (Version 1)
Quarter: 2016Q4

REPORT INFORMATION
  Report Type: Spontaneous
  Country: BR (occurrence: BR)
  Receive Date: 20161004
  Receipt Date: 20161004
  Transmission Date: 20170207
  Serious: Yes (Life-Threatening)
  Sender: FDA-Public Use
  Company Number: PHHY2016BR135828

PATIENT
  Age: 4 Year
  Sex: Female

DRUGS (3)
  1. REVOLADE [Suspect]
     Active Substance: ELTROMBOPAG
     Dosage: USED WITH SOME INTERRUPTIONS
     Route: 065
     Dates: start: 201406, end: 201608
  2. REVOLADE [Suspect]
     Active Substance: ELTROMBOPAG
     Indication: IMMUNE THROMBOCYTOPENIC PURPURA
     Dosage: 50 MG, UNK
     Route: 065
     Dates: start: 20130905
  3. REVOLADE [Suspect]
     Active Substance: ELTROMBOPAG
     Dosage: USED IRREGULARLY
     Route: 065
     Dates: start: 20160905

REACTIONS (1)
  - Platelet count decreased [Unknown]
